FAERS Safety Report 10163190 (Version 1)
Quarter: 2014Q2

REPORT INFORMATION
  Report Type: Spontaneous
  Country: DE (occurrence: DE)
  Receive Date: 20140509
  Receipt Date: 20140509
  Transmission Date: 20141212
  Serious: Yes (Other)
  Sender: FDA-Public Use
  Company Number: DE-GLAXOSMITHKLINE-D0083822A

PATIENT
  Age: 19 Year
  Sex: Male

DRUGS (7)
  1. QUILONUM RETARD [Suspect]
     Dosage: 450MG UNKNOWN
     Route: 048
     Dates: start: 20140430, end: 20140430
  2. LAMOTRIGINE [Suspect]
     Route: 048
     Dates: start: 20140430, end: 20140430
  3. NORTRILEN [Suspect]
     Route: 048
     Dates: start: 20140430, end: 20140430
  4. VENLAFAXINE [Suspect]
     Route: 048
     Dates: start: 20140430, end: 20140430
  5. ABILIFY [Suspect]
     Route: 048
     Dates: start: 20140430, end: 20140430
  6. QUETIAPINE [Suspect]
     Route: 048
     Dates: start: 20140430, end: 20140430
  7. ALCOHOL [Suspect]
     Route: 048
     Dates: start: 20140430, end: 20140430

REACTIONS (8)
  - Suicide attempt [Unknown]
  - Aspiration [Unknown]
  - Tachycardia [Unknown]
  - Sopor [Unknown]
  - Vomiting [Recovered/Resolved]
  - Blood potassium decreased [Unknown]
  - Endotracheal intubation [Unknown]
  - Sedative therapy [Unknown]
